FAERS Safety Report 13126599 (Version 2)
Quarter: 2025Q3

REPORT INFORMATION
  Report Type: Spontaneous
  Country: US (occurrence: US)
  Receive Date: 20170118
  Receipt Date: 20250826
  Transmission Date: 20251021
  Serious: Yes (Hospitalization)
  Sender: ROCHE
  Company Number: US-ROCHE-1703754

PATIENT
  Age: 78 Year
  Sex: Male

DRUGS (8)
  1. RITUXIMAB [Suspect]
     Active Substance: RITUXIMAB
     Indication: Chronic lymphocytic leukaemia
     Route: 065
  2. CAPECITABINE [Suspect]
     Active Substance: CAPECITABINE
     Indication: Skin cancer
     Route: 048
  3. FLUDARABINE [Suspect]
     Active Substance: FLUDARABINE PHOSPHATE
     Indication: Chronic lymphocytic leukaemia
     Route: 065
  4. CYCLOPHOSPHAMIDE [Suspect]
     Active Substance: CYCLOPHOSPHAMIDE
     Indication: Chronic lymphocytic leukaemia
     Route: 065
  5. ACYCLOVIR [Concomitant]
     Active Substance: ACYCLOVIR
     Route: 065
  6. ESOMEPRAZOLE [Concomitant]
     Active Substance: ESOMEPRAZOLE
  7. SIMVASTATIN [Concomitant]
     Active Substance: SIMVASTATIN
  8. PAROXETINE [Concomitant]
     Active Substance: PAROXETINE

REACTIONS (2)
  - Meningitis cryptococcal [Not Recovered/Not Resolved]
  - Off label use [Unknown]
